FAERS Safety Report 17495548 (Version 2)
Quarter: 2020Q1

REPORT INFORMATION
  Report Type: Spontaneous
  Country: US (occurrence: US)
  Receive Date: 20200304
  Receipt Date: 20200306
  Transmission Date: 20200409
  Serious: No
  Sender: FDA-Public Use
  Company Number: US-PFIZER INC-2020093910

PATIENT
  Age: 67 Year
  Sex: Female
  Weight: 70.31 kg

DRUGS (2)
  1. XELJANZ XR [Suspect]
     Active Substance: TOFACITINIB CITRATE
     Indication: RHEUMATOID ARTHRITIS
     Dosage: 11 MG, DAILY
     Route: 048
     Dates: start: 201911, end: 20200301
  2. CETIRIZINE [Concomitant]
     Active Substance: CETIRIZINE HYDROCHLORIDE
     Indication: HYPERSENSITIVITY
     Dosage: 10 MG, DAILY (EVERYDAY)

REACTIONS (5)
  - Rash erythematous [Unknown]
  - Blister [Unknown]
  - Pruritus [Unknown]
  - Skin plaque [Not Recovered/Not Resolved]
  - Burning sensation [Unknown]

NARRATIVE: CASE EVENT DATE: 201911
